FAERS Safety Report 19585841 (Version 1)
Quarter: 2021Q3

REPORT INFORMATION
  Report Type: Report from Study
  Country: None (occurrence: US)
  Receive Date: 20210721
  Receipt Date: 20210721
  Transmission Date: 20211014
  Serious: Yes (Other)
  Sender: FDA-Public Use
  Company Number: US-ABBVIE-21K-163-3993482-00

PATIENT
  Sex: Female

DRUGS (1)
  1. VENCLEXTA [Suspect]
     Active Substance: VENETOCLAX
     Indication: MYELODYSPLASTIC SYNDROME UNCLASSIFIABLE
     Dosage: 4 TABLETS ONCE A DAY
     Route: 048

REACTIONS (2)
  - Off label use [Unknown]
  - Myelodysplastic syndrome [Not Recovered/Not Resolved]
